FAERS Safety Report 16514535 (Version 5)
Quarter: 2019Q4

REPORT INFORMATION
  Report Type: Spontaneous
  Country: CL (occurrence: CL)
  Receive Date: 20190702
  Receipt Date: 20191025
  Transmission Date: 20200122
  Serious: Yes (Other)
  Sender: FDA-Public Use
  Company Number: PHHY2019CL151808

PATIENT

DRUGS (1)
  1. GILENYA [Suspect]
     Active Substance: FINGOLIMOD HYDROCHLORIDE
     Indication: PRODUCT USED FOR UNKNOWN INDICATION
     Route: 065
     Dates: start: 201510

REACTIONS (5)
  - Multiple sclerosis relapse [Recovering/Resolving]
  - Movement disorder [Unknown]
  - Expanded disability status scale score increased [Recovering/Resolving]
  - Personality disorder [Unknown]
  - Condition aggravated [Unknown]
